FAERS Safety Report 4686049-2 (Version None)
Quarter: 2005Q2

REPORT INFORMATION
  Report Type: 
  Country: None (occurrence: None)
  Receive Date: 20050609
  Receipt Date: 20050518
  Transmission Date: 20051028
  Serious: Yes (Death)
  Sender: FDA-Public Use
  Company Number: JP-BRISTOL-MYERS SQUIBB COMPANY-12972345

PATIENT
  Age: 77 Year
  Sex: Male

DRUGS (8)
  1. TAXOL [Suspect]
     Indication: GASTRIC CANCER
     Route: 042
     Dates: start: 20040828, end: 20040828
  2. LEVOFLOXACIN [Suspect]
     Indication: PYELONEPHRITIS ACUTE
     Route: 048
     Dates: start: 20040811, end: 20040829
  3. WARFARIN POTASSIUM [Concomitant]
  4. DIGOXIN [Concomitant]
  5. MORPHINE SULFATE [Concomitant]
  6. VERAPAMIL HCL [Concomitant]
  7. RISEDRONATE SODIUM [Concomitant]
  8. AMITRIPTYLINE HCL [Concomitant]

REACTIONS (1)
  - INTERSTITIAL LUNG DISEASE [None]
